FAERS Safety Report 4860707-9 (Version None)
Quarter: 2005Q4

REPORT INFORMATION
  Report Type: 
  Country: None (occurrence: None)
  Receive Date: 20051216
  Receipt Date: 20051129
  Transmission Date: 20060501
  Serious: Yes (Other)
  Sender: FDA-Public Use
  Company Number: US200512000056

PATIENT
  Age: 81 Year
  Sex: Female

DRUGS (4)
  1. FORTEO [Suspect]
     Dates: start: 20040101
  2. FORTEO PEN (FORTEO PEN) PEN, DISPOSABLE [Concomitant]
  3. SIMVASTATIN [Concomitant]
  4. MONTELUKAST SODIUM (MONTELUKAST SODIUM) [Concomitant]

REACTIONS (6)
  - BURSITIS [None]
  - COMPLICATION OF DEVICE REMOVAL [None]
  - FALL [None]
  - MEDICAL DEVICE REMOVAL [None]
  - MUSCLE INJURY [None]
  - PHARMACEUTICAL PRODUCT COMPLAINT [None]
